FAERS Safety Report 8087185-3 (Version None)
Quarter: 2012Q1

REPORT INFORMATION
  Report Type: 
  Country: None (occurrence: None)
  Receive Date: 20120128
  Receipt Date: 20110423
  Transmission Date: 20120608
  Serious: No
  Sender: FDA-Public Use
  Company Number: US-ABBOTT-11P-163-0721970-00

PATIENT
  Sex: Female
  Weight: 113.5 kg

DRUGS (7)
  1. FOLIC ACID [Concomitant]
     Indication: RHEUMATOID ARTHRITIS
  2. WARFARIN SODIUM [Concomitant]
     Indication: DEEP VEIN THROMBOSIS
  3. HUMIRA [Suspect]
     Indication: RHEUMATOID ARTHRITIS
     Dates: start: 20080801
  4. METHOTREXATE [Concomitant]
     Indication: RHEUMATOID ARTHRITIS
  5. PERCOCET [Concomitant]
     Indication: PAIN
  6. SULFASALAZINE [Concomitant]
     Indication: RHEUMATOID ARTHRITIS
  7. PLAQUENIL [Concomitant]
     Indication: RHEUMATOID ARTHRITIS

REACTIONS (11)
  - DEVICE MALFUNCTION [None]
  - GASTRIC DISORDER [None]
  - DIARRHOEA [None]
  - MALAISE [None]
  - DECREASED APPETITE [None]
  - INCORRECT DOSE ADMINISTERED [None]
  - INJECTION SITE NODULE [None]
  - ORAL HERPES [None]
  - WEIGHT DECREASED [None]
  - FEELING HOT [None]
  - VOMITING [None]
